FAERS Safety Report 11465216 (Version 4)
Quarter: 2016Q1

REPORT INFORMATION
  Report Type: Report from Study
  Country: US (occurrence: US)
  Receive Date: 20150907
  Receipt Date: 20160322
  Transmission Date: 20160525
  Serious: No
  Sender: FDA-Public Use
  Company Number: PHEH2015US014315

PATIENT
  Age: 10 Year
  Sex: Female
  Weight: 29.25 kg

DRUGS (4)
  1. ILARIS [Suspect]
     Active Substance: CANAKINUMAB
     Dosage: 100 MG, UNK
     Route: 058
     Dates: start: 20150528
  2. CHILDRENS TYLENOL [Concomitant]
     Active Substance: ACETAMINOPHEN
     Indication: PAIN
     Route: 048
  3. ILARIS [Suspect]
     Active Substance: CANAKINUMAB
     Dosage: 100 MG, EVERY FOUR WEEKS
     Route: 058
  4. CHILDRENS MOTRIN [Concomitant]
     Active Substance: IBUPROFEN
     Indication: PAIN
     Route: 048

REACTIONS (7)
  - Inappropriate schedule of drug administration [Unknown]
  - Pyrexia [Recovered/Resolved]
  - Rash [Recovered/Resolved]
  - Pyrexia [Recovered/Resolved]
  - Rash [Recovered/Resolved]
  - Incorrect dose administered [Recovered/Resolved]
  - Viral infection [Unknown]

NARRATIVE: CASE EVENT DATE: 20150717
